FAERS Safety Report 5810767-3 (Version None)
Quarter: 2008Q3

REPORT INFORMATION
  Report Type: 
  Country: None (occurrence: None)
  Receive Date: 20080715
  Receipt Date: 20080708
  Transmission Date: 20090109
  Serious: Yes (Hospitalization, Disabling)
  Sender: FDA-Public Use
  Company Number: US-MERCK-0805USA03133

PATIENT
  Age: 66 Year
  Sex: Female
  Weight: 57 kg

DRUGS (2)
  1. FOSAMAX [Suspect]
     Indication: OSTEOPENIA
     Route: 048
     Dates: end: 20080201
  2. FOSAMAX [Suspect]
     Route: 048
     Dates: start: 19980101

REACTIONS (5)
  - BONE DISORDER [None]
  - BRONCHITIS [None]
  - BRONCHOSPASM [None]
  - PNEUMONIA [None]
  - PNEUMONIA MYCOPLASMAL [None]
